FAERS Safety Report 22629261 (Version 5)
Quarter: 2024Q4

REPORT INFORMATION
  Report Type: Report from Study
  Country: CA (occurrence: CA)
  Receive Date: 20230622
  Receipt Date: 20241217
  Transmission Date: 20250115
  Serious: No
  Sender: TAKEDA
  Company Number: CA-TAKEDA-2023TUS060108

PATIENT
  Age: 77 Year
  Sex: Male

DRUGS (9)
  1. TEDUGLUTIDE [Suspect]
     Active Substance: TEDUGLUTIDE
     Indication: Short-bowel syndrome
     Dosage: 3.72 MILLIGRAM, QD
     Dates: start: 20160301, end: 20170104
  2. TEDUGLUTIDE [Suspect]
     Active Substance: TEDUGLUTIDE
     Dosage: 3.81 MILLIGRAM, QD
     Dates: start: 20170105
  3. TEDUGLUTIDE [Suspect]
     Active Substance: TEDUGLUTIDE
  4. TEDUGLUTIDE [Suspect]
     Active Substance: TEDUGLUTIDE
  5. GABAPENTIN [Concomitant]
     Active Substance: GABAPENTIN
     Indication: Headache
     Dosage: 300 MILLIGRAM
     Dates: start: 20210824, end: 20210827
  6. CIPROFLOXACIN [Concomitant]
     Active Substance: CIPROFLOXACIN
     Indication: Cholecystitis acute
     Dosage: UNK
     Dates: start: 20210109, end: 20210116
  7. GLUCOSAMINE [Concomitant]
     Active Substance: GLUCOSAMINE
     Indication: Arthropathy
     Dosage: UNK
  8. CICLESONIDE [Concomitant]
     Active Substance: CICLESONIDE
     Dosage: 100 MICROGRAM, QD
     Dates: start: 2023
  9. DIETARY SUPPLEMENT [Concomitant]
     Active Substance: DIETARY SUPPLEMENT
     Indication: Nutritional supplementation
     Dosage: UNK

REACTIONS (1)
  - Seborrhoeic keratosis [Not Recovered/Not Resolved]

NARRATIVE: CASE EVENT DATE: 20180101
